FAERS Safety Report 6315068-5 (Version None)
Quarter: 2009Q3

REPORT INFORMATION
  Report Type: 
  Country: None (occurrence: None)
  Receive Date: 20090818
  Receipt Date: 20090818
  Transmission Date: 20100115
  Serious: Yes (Death)
  Sender: FDA-Public Use
  Company Number: None

PATIENT
  Age: 89 Year
  Sex: Male
  Weight: 86.1834 kg

DRUGS (1)
  1. EXELON [Suspect]
     Indication: DEMENTIA
     Dosage: ONCE DAILY TRANSDERMAL
     Route: 062
     Dates: start: 20090712, end: 20090725

REACTIONS (4)
  - HAEMATOCHEZIA [None]
  - HAEMORRHAGE [None]
  - PNEUMONIA [None]
  - SEPSIS [None]
